FAERS Safety Report 8167814-6 (Version None)
Quarter: 2012Q1

REPORT INFORMATION
  Report Type: 
  Country: None (occurrence: None)
  Receive Date: 20120227
  Receipt Date: 20120214
  Transmission Date: 20120608
  Serious: Yes (Other)
  Sender: FDA-Public Use
  Company Number: TN-ROCHE-1032993

PATIENT
  Sex: Female
  Weight: 68 kg

DRUGS (7)
  1. ACTEMRA [Suspect]
     Route: 042
     Dates: start: 20110906
  2. ACTEMRA [Suspect]
     Route: 042
     Dates: start: 20110716
  3. ACTEMRA [Suspect]
     Route: 042
     Dates: start: 20111209
  4. METHOTREXATE [Concomitant]
     Indication: RHEUMATOID ARTHRITIS
     Route: 048
  5. PREDNISONE [Concomitant]
     Indication: RHEUMATOID ARTHRITIS
     Route: 048
  6. ACTEMRA [Suspect]
     Indication: RHEUMATOID ARTHRITIS
     Dosage: LAST DOSE PRIOR TO SAE: 9/DEC/2011
     Route: 042
     Dates: start: 20110405, end: 20120110
  7. ACTEMRA [Suspect]
     Route: 042
     Dates: start: 20111008

REACTIONS (1)
  - LOWER GASTROINTESTINAL HAEMORRHAGE [None]
